FAERS Safety Report 5909564-X (Version None)
Quarter: 2008Q4

REPORT INFORMATION
  Report Type: 
  Country: None (occurrence: None)
  Receive Date: 20081002
  Receipt Date: 20080917
  Transmission Date: 20090506
  Serious: Yes (Other)
  Sender: FDA-Public Use
  Company Number: 2008S1017020

PATIENT
  Age: 74 Year
  Sex: Male

DRUGS (4)
  1. GLYCERYL TRINITRATE (GLYCERYL TRINITRATE) [Suspect]
     Indication: TILT TABLE TEST
     Dosage: 400 UG;  SUBLINGUAL
     Route: 060
  2. BENDROFLUAZIDE [Concomitant]
  3. SIMVASTATIN [Concomitant]
  4. LEVOTHYROXINE SODIUM [Concomitant]

REACTIONS (1)
  - MYOCARDIAL INFARCTION [None]
